FAERS Safety Report 6005406-5 (Version None)
Quarter: 2008Q4

REPORT INFORMATION
  Report Type: 
  Country: None (occurrence: None)
  Receive Date: 20081217
  Receipt Date: 20081209
  Transmission Date: 20090506
  Serious: Yes (Hospitalization)
  Sender: FDA-Public Use
  Company Number: DE-RANBAXY-2008RR-19815

PATIENT
  Age: 73 Year
  Sex: Male

DRUGS (10)
  1. AMOXICILLIN AND CLAVULANATE POTASSIUM [Suspect]
     Indication: PNEUMONIA
     Dosage: 0.5 DF, BID
     Route: 048
     Dates: start: 20081013, end: 20081020
  2. CORDAREX [Concomitant]
  3. INSULIN [Concomitant]
  4. KLACID 250 [Concomitant]
     Dosage: 1 DF, BID
     Dates: start: 20080610
  5. LASIX [Concomitant]
  6. MARCUMAR [Concomitant]
  7. NOVODIGAL [Concomitant]
  8. RAMIPRIL [Concomitant]
  9. ROCEPHIN [Concomitant]
  10. UNACID 3 G [Concomitant]
     Dosage: 1 DF, TID
     Dates: start: 20080610

REACTIONS (1)
  - ACUTE HEPATIC FAILURE [None]
